FAERS Safety Report 11157162 (Version 1)
Quarter: 2015Q2

REPORT INFORMATION
  Report Type: Spontaneous
  Country: US (occurrence: None)
  Receive Date: 20150601
  Receipt Date: 20150601
  Transmission Date: 20150821
  Serious: No
  Sender: FDA-Public Use
  Company Number: None

PATIENT
  Age: 50 Year
  Sex: Male
  Weight: 122.47 kg

DRUGS (17)
  1. DULAGLUTIDE. [Concomitant]
     Active Substance: DULAGLUTIDE
  2. TRULICITY [Suspect]
     Active Substance: DULAGLUTIDE
     Indication: TYPE 2 DIABETES MELLITUS
     Dosage: 7 OR 11 WEEKS, GIVEN INTO/UNDER THE SKIN
  3. RESMED AIR CURVE S10 VAUTO [Concomitant]
  4. ATORVASTATIN [Concomitant]
     Active Substance: ATORVASTATIN
  5. FENOFIBRATE. [Concomitant]
     Active Substance: FENOFIBRATE
  6. SAW PALMETTO [Concomitant]
     Active Substance: SAW PALMETTO
  7. INSULIN GLARGINE [Concomitant]
     Active Substance: INSULIN GLARGINE
  8. OMEPRAZOLE. [Concomitant]
     Active Substance: OMEPRAZOLE
  9. AMLODIPINE [Concomitant]
     Active Substance: AMLODIPINE BESYLATE
  10. VITAMIN D3 [Concomitant]
     Active Substance: CHOLECALCIFEROL
  11. METFORMIN [Concomitant]
     Active Substance: METFORMIN HYDROCHLORIDE
  12. CITALOPRAM [Concomitant]
     Active Substance: CITALOPRAM HYDROBROMIDE
  13. METOPROLOL [Concomitant]
     Active Substance: METOPROLOL
  14. IRBESARTAN. [Concomitant]
     Active Substance: IRBESARTAN
  15. INSULIN LISPRO [Concomitant]
     Active Substance: INSULIN LISPRO
  16. TRULICITY [Suspect]
     Active Substance: DULAGLUTIDE
     Indication: GLYCOSYLATED HAEMOGLOBIN INCREASED
     Dosage: 7 OR 11 WEEKS, GIVEN INTO/UNDER THE SKIN
  17. BUPROPION [Concomitant]
     Active Substance: BUPROPION

REACTIONS (1)
  - Diarrhoea [None]

NARRATIVE: CASE EVENT DATE: 20150530
